FAERS Safety Report 21859946 (Version 4)
Quarter: 2025Q4

REPORT INFORMATION
  Report Type: Report from Study
  Country: EU (occurrence: EU)
  Receive Date: 20230113
  Receipt Date: 20251103
  Transmission Date: 20260118
  Serious: Yes (Death, Hospitalization, Other)
  Sender: PFIZER
  Company Number: EU-PFM-2023-00202

PATIENT
  Age: 84 Year
  Sex: Male

DRUGS (12)
  1. ENCORAFENIB [Suspect]
     Active Substance: ENCORAFENIB
     Indication: Malignant melanoma
     Dosage: 450 MG, QD (1/DAY)
     Route: 048
     Dates: start: 20210319, end: 20221117
  2. BINIMETINIB [Suspect]
     Active Substance: BINIMETINIB
     Indication: Malignant melanoma
     Dosage: 45 MG, BID (2/DAY)
     Route: 048
     Dates: start: 20210319, end: 20221117
  3. XARELTO [Concomitant]
     Active Substance: RIVAROXABAN
     Dosage: UNK
     Route: 065
  4. RAMIPRIL [Concomitant]
     Active Substance: RAMIPRIL
     Dosage: UNK
     Route: 065
  5. AMLODIPINE MALEATE [Concomitant]
     Active Substance: AMLODIPINE MALEATE
     Dosage: UNK
     Route: 065
  6. METOPROLOL [Concomitant]
     Active Substance: METOPROLOL
     Dosage: UNK
     Route: 065
  7. HYDROCHLOROTHIAZIDE [Concomitant]
     Active Substance: HYDROCHLOROTHIAZIDE
     Dosage: UNK
     Route: 065
  8. CALCIMAGON [CALCIUM] [Concomitant]
     Indication: Prophylaxis
     Dosage: UNK
     Route: 065
  9. FOLIC ACID [Concomitant]
     Active Substance: FOLIC ACID
     Indication: Prophylaxis
     Dosage: UNK
     Route: 065
  10. COMIRNATY [Concomitant]
     Dosage: DOSE NUMBER UNKNOWN, SINGLE
     Route: 065
     Dates: start: 20210606, end: 20210606
  11. COMIRNATY [Concomitant]
     Dosage: DOSE NUMBER UNKNOWN, SINGLE
     Route: 065
     Dates: start: 20210617, end: 20210617
  12. IMODIUM [Concomitant]
     Active Substance: LOPERAMIDE HYDROCHLORIDE
     Indication: Diarrhoea
     Dosage: UNK
     Route: 065
     Dates: start: 20210325, end: 20210415

REACTIONS (2)
  - Sepsis [Fatal]
  - Status epilepticus [Unknown]

NARRATIVE: CASE EVENT DATE: 20221128
